FAERS Safety Report 8021615-8 (Version None)
Quarter: 2012Q1

REPORT INFORMATION
  Report Type: 
  Country: None (occurrence: None)
  Receive Date: 20120104
  Receipt Date: 20120104
  Transmission Date: 20120608
  Serious: Yes (Hospitalization)
  Sender: FDA-Public Use
  Company Number: None

PATIENT
  Age: 75 Year
  Sex: Male
  Weight: 66 kg

DRUGS (2)
  1. WARFARIN SODIUM [Suspect]
     Indication: MITRAL VALVE REPLACEMENT
     Dosage: UNKNOWN
     Route: 048
  2. ACETAMINOPHEN AND HYDROCODONE BITARTRATE [Concomitant]
     Route: 048

REACTIONS (5)
  - HAEMOGLOBIN DECREASED [None]
  - CONFUSIONAL STATE [None]
  - HAEMARTHROSIS [None]
  - INTERNATIONAL NORMALISED RATIO INCREASED [None]
  - HAEMATOCRIT DECREASED [None]
